FAERS Safety Report 8838790 (Version 1)
Quarter: 2012Q4

REPORT INFORMATION
  Report Type: 
  Country: US (occurrence: US)
  Receive Date: 20121014
  Receipt Date: 20121014
  Transmission Date: 20130627
  Serious: No
  Sender: FDA-Public Use
  Company Number: US-B.I. PHARMACEUTICALS,INC./RIDGEFIELD-2012-BP-25177BP

PATIENT
  Age: 80 Year
  Sex: Female

DRUGS (9)
  1. TRADJENTA [Suspect]
     Indication: DIABETES MELLITUS
     Dosage: 5 mg
     Route: 048
     Dates: start: 20121009
  2. ARICEPT [Concomitant]
     Indication: DEMENTIA
  3. DIOVAN [Concomitant]
     Indication: HYPERTENSION
  4. VITAMIN D [Concomitant]
  5. MAGNESIUM [Concomitant]
  6. CENTRUM SILVER [Concomitant]
  7. COREG [Concomitant]
     Indication: HYPERTENSION
  8. CALCIUM [Concomitant]
  9. FISH OIL [Concomitant]
     Indication: BLOOD CHOLESTEROL INCREASED

REACTIONS (1)
  - Blood glucose increased [Not Recovered/Not Resolved]
